FAERS Safety Report 10579640 (Version 6)
Quarter: 2016Q2

REPORT INFORMATION
  Report Type: Report from Study
  Country: KR (occurrence: KR)
  Receive Date: 20141112
  Receipt Date: 20160422
  Transmission Date: 20160815
  Serious: Yes (Death, Hospitalization)
  Sender: FDA-Public Use
  Company Number: KR-ASTELLAS-2014JP009923AA

PATIENT
  Age: 83 Year
  Sex: Male
  Weight: 45 kg

DRUGS (5)
  1. ALBIS [Concomitant]
     Active Substance: BISMUTH SUBCITRATE\RANITIDINE HYDROCHLORIDE\SUCRALFATE
     Indication: PROSTATE CANCER
     Dosage: 2 TABLETS DAILY DOSE, TWICE DAILY
     Route: 048
     Dates: start: 20131216, end: 20141024
  2. MEGACE F [Concomitant]
     Indication: PROSTATE CANCER
     Route: 048
     Dates: start: 20131216, end: 20140605
  3. ENZALUTAMIDE [Suspect]
     Active Substance: ENZALUTAMIDE
     Indication: HORMONE-REFRACTORY PROSTATE CANCER
     Dosage: UNK, UNKNOWN FREQ.
     Route: 048
     Dates: start: 20140418
  4. HARNAL [Concomitant]
     Active Substance: TAMSULOSIN HYDROCHLORIDE
     Indication: PROSTATE CANCER
     Route: 048
     Dates: start: 20130807, end: 20141024
  5. NEURONTIN [Concomitant]
     Active Substance: GABAPENTIN
     Indication: PROSTATE CANCER
     Dosage: 600 MG DAILY DOSE, TWICE DAILY
     Route: 048
     Dates: start: 20131216, end: 20141024

REACTIONS (5)
  - Hyponatraemia [Recovered/Resolved]
  - Haemoglobin decreased [Recovered/Resolved]
  - Death [Fatal]
  - Nausea [Recovered/Resolved]
  - Vomiting [Recovered/Resolved]

NARRATIVE: CASE EVENT DATE: 20140418
